FAERS Safety Report 17006761 (Version 1)
Quarter: 2019Q4

REPORT INFORMATION
  Report Type: Spontaneous
  Country: US (occurrence: US)
  Receive Date: 20191107
  Receipt Date: 20191107
  Transmission Date: 20200122
  Serious: No
  Sender: FDA-Public Use
  Company Number: US-TARO-2018TAR00724

PATIENT
  Age: 89 Year
  Sex: Female

DRUGS (2)
  1. MUPIROCIN OINTMENT USP 2% [Suspect]
     Active Substance: MUPIROCIN
     Dosage: ^A TINY AMOUNT^
     Route: 045
     Dates: start: 2018, end: 2018
  2. MUPIROCIN OINTMENT USP 2% [Suspect]
     Active Substance: MUPIROCIN
     Indication: DRY SKIN PROPHYLAXIS
     Dosage: ^LARGER AMOUNT^
     Route: 045
     Dates: start: 2018

REACTIONS (4)
  - Incorrect product administration duration [Not Recovered/Not Resolved]
  - Application site pain [Not Recovered/Not Resolved]
  - Off label use [Not Recovered/Not Resolved]
  - Product administered at inappropriate site [Not Recovered/Not Resolved]

NARRATIVE: CASE EVENT DATE: 2018
